APPROVED DRUG PRODUCT: DILTIAZEM HYDROCHLORIDE
Active Ingredient: DILTIAZEM HYDROCHLORIDE
Strength: 360MG
Dosage Form/Route: CAPSULE, EXTENDED RELEASE;ORAL
Application: A090492 | Product #005
Applicant: SUN PHARMACEUTICAL INDUSTRIES LTD
Approved: Oct 28, 2011 | RLD: No | RS: No | Type: DISCN